FAERS Safety Report 6511232-0 (Version None)
Quarter: 2009Q4

REPORT INFORMATION
  Report Type: 
  Country: None (occurrence: None)
  Receive Date: 20091222
  Receipt Date: 20090302
  Transmission Date: 20100525
  Serious: No
  Sender: FDA-Public Use
  Company Number: US-ASTRAZENECA-2009UW05634

PATIENT
  Sex: Male
  Weight: 102.1 kg

DRUGS (2)
  1. CRESTOR [Suspect]
     Indication: BLOOD CHOLESTEROL
     Route: 048
     Dates: start: 20080101, end: 20080101
  2. CRESTOR [Suspect]
     Route: 048
     Dates: start: 20080101

REACTIONS (1)
  - PAIN IN EXTREMITY [None]
